FAERS Safety Report 9691685 (Version 2)
Quarter: 2013Q4

REPORT INFORMATION
  Report Type: Spontaneous
  Country: IT (occurrence: IT)
  Receive Date: 20131115
  Receipt Date: 20131227
  Transmission Date: 20140711
  Serious: Yes (Hospitalization)
  Sender: FDA-Public Use
  Company Number: IT-ABBVIE-13P-083-1169309-00

PATIENT
  Age: 40 Year
  Sex: Female

DRUGS (5)
  1. VALPROATE SODIUM [Suspect]
     Indication: DRUG ABUSE
     Route: 065
     Dates: start: 20130917, end: 20130917
  2. ALPRAZOLAM [Suspect]
     Indication: DRUG ABUSE
     Route: 065
     Dates: start: 20130917, end: 20130917
  3. VENLAFAXINE HYDROCHLORIDE [Suspect]
     Indication: DRUG ABUSE
     Route: 065
     Dates: start: 20130917, end: 20130917
  4. CARBOLITHIUM [Suspect]
     Indication: DRUG ABUSE
     Route: 065
     Dates: start: 20130917, end: 20130917
  5. BUPROPION HYDROCHLORIDE [Suspect]
     Indication: DRUG ABUSE
     Route: 065
     Dates: start: 20130917, end: 20130917

REACTIONS (3)
  - Sopor [Recovering/Resolving]
  - Drug abuse [Recovering/Resolving]
  - Confusional state [Recovering/Resolving]
